FAERS Safety Report 4355540-0 (Version None)
Quarter: 2004Q2

REPORT INFORMATION
  Report Type: 
  Country: None (occurrence: None)
  Receive Date: 20040505
  Receipt Date: 20040416
  Transmission Date: 20050107
  Serious: Yes (Other)
  Sender: FDA-Public Use
  Company Number: DSA_24337_2004

PATIENT
  Sex: Female

DRUGS (1)
  1. LORAZEPAM [Suspect]

REACTIONS (2)
  - GENERAL PHYSICAL HEALTH DETERIORATION [None]
  - MEDICATION ERROR [None]
